FAERS Safety Report 11473989 (Version 1)
Quarter: 2015Q3

REPORT INFORMATION
  Report Type: Spontaneous
  Country: US (occurrence: US)
  Receive Date: 20150908
  Receipt Date: 20150908
  Transmission Date: 20151125
  Serious: No
  Sender: FDA-Public Use
  Company Number: US-JAZZ-2013-US-002696

PATIENT
  Sex: Female
  Weight: 68.93 kg

DRUGS (13)
  1. XYREM [Suspect]
     Active Substance: SODIUM OXYBATE
     Indication: NARCOLEPSY
     Dosage: 2.25 G, BID
     Route: 048
     Dates: start: 201310, end: 2013
  2. XYREM [Suspect]
     Active Substance: SODIUM OXYBATE
     Dosage: 1.75 G, QD
     Route: 048
     Dates: start: 201402, end: 2014
  3. ZYRTEC [Concomitant]
     Active Substance: CETIRIZINE HYDROCHLORIDE
     Indication: PRODUCT USED FOR UNKNOWN INDICATION
     Dosage: 10 MG, QD
     Route: 048
  4. ULTRAM [Concomitant]
     Active Substance: TRAMADOL HYDROCHLORIDE
     Indication: PRODUCT USED FOR UNKNOWN INDICATION
     Dosage: 50 MG, 1 TO 2 TABLETS 4 TIMES
     Route: 048
  5. PLAQUENIL [Concomitant]
     Active Substance: HYDROXYCHLOROQUINE SULFATE
     Indication: PRODUCT USED FOR UNKNOWN INDICATION
     Dosage: 200 MG, QD
     Route: 048
  6. CYMBALTA [Concomitant]
     Active Substance: DULOXETINE HYDROCHLORIDE
     Indication: PRODUCT USED FOR UNKNOWN INDICATION
     Dosage: 60 MG, BID
  7. PREVACID [Concomitant]
     Active Substance: LANSOPRAZOLE
     Indication: PRODUCT USED FOR UNKNOWN INDICATION
     Dosage: 30 MG, BID
     Route: 048
  8. VIVELLE-DOT [Concomitant]
     Active Substance: ESTRADIOL
     Indication: PRODUCT USED FOR UNKNOWN INDICATION
     Dosage: PLACE 1 PATCH ON TO THE SKIN EVERY 7 DAYS
     Route: 061
  9. NUVIGIL [Suspect]
     Active Substance: ARMODAFINIL
     Indication: NARCOLEPSY
     Dosage: UNKNOWN DOSE
     Dates: start: 201310, end: 2013
  10. POLY-IRON [Concomitant]
     Indication: PRODUCT USED FOR UNKNOWN INDICATION
     Dosage: 150 MG, QD
     Route: 048
  11. SYNTHROID [Concomitant]
     Active Substance: LEVOTHYROXINE SODIUM
     Indication: PRODUCT USED FOR UNKNOWN INDICATION
     Dosage: 100 ?G, QD
     Route: 048
  12. VITAMIN B12 [Concomitant]
     Active Substance: CYANOCOBALAMIN
     Indication: PRODUCT USED FOR UNKNOWN INDICATION
     Dosage: UNK, QD
     Route: 048
  13. MULTIVITAMINS [Concomitant]
     Active Substance: VITAMINS
     Indication: PRODUCT USED FOR UNKNOWN INDICATION
     Dosage: 2 DAILY
     Route: 048

REACTIONS (22)
  - Nasal congestion [Unknown]
  - Dizziness [Unknown]
  - Fatigue [Unknown]
  - Chest discomfort [Recovered/Resolved]
  - Seasonal allergy [Unknown]
  - Oedema peripheral [Unknown]
  - Myalgia [Unknown]
  - Chest pain [Unknown]
  - Disturbance in attention [Unknown]
  - Nausea [Unknown]
  - Headache [Unknown]
  - Anxiety [Unknown]
  - Thirst [Unknown]
  - Adverse drug reaction [Unknown]
  - Dysphonia [Unknown]
  - Rash macular [Unknown]
  - Vertigo [Unknown]
  - Depression [Unknown]
  - Arthralgia [Unknown]
  - Pruritus [Unknown]
  - Dysphagia [Unknown]
  - Memory impairment [Unknown]

NARRATIVE: CASE EVENT DATE: 2013
